FAERS Safety Report 8598008-8 (Version None)
Quarter: 2012Q3

REPORT INFORMATION
  Report Type: 
  Country: None (occurrence: None)
  Receive Date: 20120816
  Receipt Date: 20120808
  Transmission Date: 20120928
  Serious: Yes (Hospitalization)
  Sender: FDA-Public Use
  Company Number: IN-BRISTOL-MYERS SQUIBB COMPANY-16813735

PATIENT
  Age: 76 Year
  Sex: Female

DRUGS (4)
  1. SHELCAL [Concomitant]
     Dates: start: 20111214
  2. ABATACEPT [Suspect]
     Indication: RHEUMATOID ARTHRITIS
     Dosage: 125 MG:01DEC08-12MAY07-BLINDED 19MAY07-02FEB11-OPEN 31AUG11-ONG
     Route: 058
     Dates: start: 20081201
  3. METHOTREXATE [Suspect]
     Indication: RHEUMATOID ARTHRITIS
     Dates: start: 20111214
  4. IBANDRONATE SODIUM [Concomitant]
     Dates: start: 20111214

REACTIONS (1)
  - RESPIRATORY TRACT INFECTION [None]
